FAERS Safety Report 5680408-7 (Version None)
Quarter: 2008Q1

REPORT INFORMATION
  Report Type: 
  Country: None (occurrence: None)
  Receive Date: 20080326
  Receipt Date: 20080320
  Transmission Date: 20080703
  Serious: Yes (Hospitalization, Other)
  Sender: FDA-Public Use
  Company Number: US-JNJFOC-20080305337

PATIENT
  Sex: Female

DRUGS (1)
  1. TOPAMAX [Suspect]
     Indication: MIGRAINE PROPHYLAXIS

REACTIONS (3)
  - METAMORPHOPSIA [None]
  - RETINAL DETACHMENT [None]
  - RETINAL PIGMENT EPITHELIOPATHY [None]
